FAERS Safety Report 8437648-3 (Version None)
Quarter: 2012Q2

REPORT INFORMATION
  Report Type: 
  Country: None (occurrence: None)
  Receive Date: 20120323
  Receipt Date: 20110617
  Transmission Date: 20120825
  Serious: Yes (Hospitalization)
  Sender: FDA-Public Use
  Company Number: 163-21880-11062491

PATIENT
  Age: 74 Year
  Sex: Male

DRUGS (5)
  1. LENALIDOMIDE [Suspect]
     Indication: MULTIPLE MYELOMA
     Dosage: 10 MG, PO, 25 MG, 1 IN 1 D, PO, 15 MG, 1 IN 1 D, PO, 10 MG, 1 IN 1 D, PO, 10 MG, 21, PO
     Route: 048
     Dates: start: 20070601
  2. LENALIDOMIDE [Suspect]
     Indication: MULTIPLE MYELOMA
     Dosage: 10 MG, PO, 25 MG, 1 IN 1 D, PO, 15 MG, 1 IN 1 D, PO, 10 MG, 1 IN 1 D, PO, 10 MG, 21, PO
     Route: 048
     Dates: start: 20110601
  3. LENALIDOMIDE [Suspect]
     Indication: MULTIPLE MYELOMA
     Dosage: 10 MG, PO, 25 MG, 1 IN 1 D, PO, 15 MG, 1 IN 1 D, PO, 10 MG, 1 IN 1 D, PO, 10 MG, 21, PO
     Route: 048
     Dates: start: 20071201
  4. LENALIDOMIDE [Suspect]
     Indication: MULTIPLE MYELOMA
     Dosage: 10 MG, PO, 25 MG, 1 IN 1 D, PO, 15 MG, 1 IN 1 D, PO, 10 MG, 1 IN 1 D, PO, 10 MG, 21, PO
     Route: 048
     Dates: start: 20080301
  5. LENALIDOMIDE [Suspect]
     Indication: MULTIPLE MYELOMA
     Dosage: 10 MG, PO, 25 MG, 1 IN 1 D, PO, 15 MG, 1 IN 1 D, PO, 10 MG, 1 IN 1 D, PO, 10 MG, 21, PO
     Route: 048
     Dates: start: 20110601

REACTIONS (1)
  - DEHYDRATION [None]
